FAERS Safety Report 20980601 (Version 1)
Quarter: 2022Q2

REPORT INFORMATION
  Report Type: Spontaneous
  Country: CN (occurrence: CN)
  Receive Date: 20220620
  Receipt Date: 20220620
  Transmission Date: 20220721
  Serious: No
  Sender: FDA-Public Use
  Company Number: CN-ALKEM LABORATORIES LIMITED-CN-ALKEM-2022-05077

PATIENT
  Age: 32 Year
  Sex: Female

DRUGS (1)
  1. SILDENAFIL [Suspect]
     Active Substance: SILDENAFIL
     Indication: Product used for unknown indication
     Dosage: 2000 MILLIGRAM (SINGLE OVERDOSE)
     Route: 065

REACTIONS (7)
  - Flushing [Recovered/Resolved]
  - Dizziness [Recovered/Resolved]
  - Dyschromatopsia [Recovered/Resolved]
  - Vision blurred [Recovered/Resolved]
  - Disruption of the photoreceptor inner segment-outer segment [Recovered/Resolved]
  - Visual impairment [Recovered/Resolved]
  - Overdose [Unknown]
